FAERS Safety Report 4829366-5 (Version None)
Quarter: 2005Q4

REPORT INFORMATION
  Report Type: 
  Country: None (occurrence: None)
  Receive Date: 20051116
  Receipt Date: 20051103
  Transmission Date: 20060501
  Serious: Yes (Hospitalization)
  Sender: FDA-Public Use
  Company Number: PHRM2005FR02904

PATIENT
  Age: 58 Year
  Sex: Male

DRUGS (5)
  1. ZOMETA [Suspect]
     Indication: METASTASES TO BONE
     Dosage: 4 MG QMO ALTERNATELY WITH AREDIA
     Route: 042
     Dates: start: 20030701, end: 20050629
  2. ROFERON [Concomitant]
     Route: 058
     Dates: start: 20031101, end: 20040401
  3. GEMCITABINE [Concomitant]
     Dosage: 1100 MG PER COURSE
     Dates: start: 20050708
  4. FLUOROURACIL [Concomitant]
     Dosage: 1900 MG PER COURSE
     Dates: start: 20050708
  5. AREDIA [Suspect]
     Indication: METASTASES TO BONE
     Dosage: 90 MG QMO ALTERNATELY WITH ZOMETA
     Route: 042
     Dates: start: 20030701, end: 20050629

REACTIONS (5)
  - GINGIVAL INJURY [None]
  - OSTEONECROSIS [None]
  - TOOTH EXTRACTION [None]
  - TOOTH FRACTURE [None]
  - WOUND DEHISCENCE [None]
